FAERS Safety Report 7333360-2 (Version None)
Quarter: 2011Q1

REPORT INFORMATION
  Report Type: 
  Country: None (occurrence: None)
  Receive Date: 20110304
  Receipt Date: 20100421
  Transmission Date: 20110831
  Serious: No
  Sender: FDA-Public Use
  Company Number: US-TYCO HEALTHCARE/MALLINCKRODT-T201001063

PATIENT

DRUGS (4)
  1. RESTORIL [Suspect]
     Dosage: UNK
  2. LUNESTA [Suspect]
     Indication: MIDDLE INSOMNIA
     Dosage: 3 MG, PRN
  3. SONATA [Suspect]
     Dosage: UNK
  4. XANAX [Suspect]
     Dosage: UNK

REACTIONS (3)
  - DRUG INEFFECTIVE [None]
  - MIDDLE INSOMNIA [None]
  - FATIGUE [None]
